FAERS Safety Report 4503992-5 (Version None)
Quarter: 2004Q3

REPORT INFORMATION
  Report Type: 
  Country: None (occurrence: None)
  Receive Date: 20040927
  Receipt Date: 20040629
  Transmission Date: 20050211
  Serious: No
  Sender: FDA-Public Use
  Company Number: USA040671417

PATIENT
  Age: 50 Year
  Sex: Female

DRUGS (4)
  1. STRATTERA [Suspect]
     Dosage: 80 MG DAY
     Dates: start: 20040401
  2. LIDOCAINE [Concomitant]
  3. ZOLOFT [Concomitant]
  4. HUMALOG MIX 75/25 [Concomitant]

REACTIONS (1)
  - SOMNOLENCE [None]
